FAERS Safety Report 25811301 (Version 1)
Quarter: 2025Q3

REPORT INFORMATION
  Report Type: Spontaneous
  Country: EU (occurrence: EU)
  Receive Date: 20250917
  Receipt Date: 20250917
  Transmission Date: 20251021
  Serious: Yes (Hospitalization)
  Sender: TEVA
  Company Number: EU-SZ09-PHHO2011DK17761

PATIENT
  Age: 69 Year
  Sex: Male

DRUGS (11)
  1. ENALAPRIL [Suspect]
     Active Substance: ENALAPRIL
     Indication: Cardiac failure
     Route: 048
     Dates: start: 20090910
  2. CITALOPRAM [Suspect]
     Active Substance: CITALOPRAM
     Indication: Depression
     Dosage: 20 MG, QD
     Route: 065
     Dates: start: 20040315, end: 20111017
  3. CITALOPRAM [Suspect]
     Active Substance: CITALOPRAM
     Indication: Depression
     Route: 065
     Dates: start: 20111019
  4. CLOPIDOGREL [Suspect]
     Active Substance: CLOPIDOGREL BISULFATE
     Indication: Myocardial infarction
     Route: 065
  5. CLOPIDOGREL [Suspect]
     Active Substance: CLOPIDOGREL BISULFATE
     Indication: Myocardial infarction
     Dosage: 75 MG, QD
     Route: 065
     Dates: start: 2004
  6. CLOPIDOGREL [Suspect]
     Active Substance: CLOPIDOGREL BISULFATE
     Indication: Myocardial infarction
     Route: 065
  7. ASPIRIN [Suspect]
     Active Substance: ASPIRIN
     Indication: Myocardial infarction
     Dosage: 75 MG, QD
     Route: 065
     Dates: start: 19960809, end: 20111017
  8. ATORVASTATIN [Concomitant]
     Active Substance: ATORVASTATIN
     Indication: Hypercholesterolaemia
     Dosage: 80 MG, QD
     Route: 065
     Dates: start: 20090828
  9. ALISKIREN [Suspect]
     Active Substance: ALISKIREN
     Indication: Cardiac failure
     Route: 048
     Dates: start: 20090910
  10. CARVEDILOL [Concomitant]
     Active Substance: CARVEDILOL
     Indication: Cardiac failure
     Dosage: 25 MG, BID
     Route: 065
     Dates: start: 20080118
  11. FUROSEMIDE [Concomitant]
     Active Substance: FUROSEMIDE
     Indication: Cardiac failure
     Dosage: 40 MG, QD
     Route: 065
     Dates: start: 20040213

REACTIONS (2)
  - Anaemia [Recovered/Resolved]
  - Anaemia [Recovered/Resolved]

NARRATIVE: CASE EVENT DATE: 20111017
